FAERS Safety Report 10027566 (Version 3)
Quarter: 2015Q1

REPORT INFORMATION
  Report Type: Spontaneous
  Country: US (occurrence: US)
  Receive Date: 20140321
  Receipt Date: 20150220
  Transmission Date: 20150720
  Serious: Yes (Hospitalization)
  Sender: FDA-Public Use
  Company Number: US-BAYER-2014-042587

PATIENT
  Age: 21 Year
  Sex: Female
  Weight: 69 kg

DRUGS (1)
  1. MIRENA [Suspect]
     Active Substance: LEVONORGESTREL
     Indication: CONTRACEPTION
     Dosage: 20 MCG/24HR, CONT
     Route: 015
     Dates: start: 20080714, end: 20110324

REACTIONS (10)
  - Device dislocation [None]
  - Uterine perforation [None]
  - Pain [None]
  - Anxiety [None]
  - Abdominal pain lower [None]
  - Vaginal discharge [None]
  - Emotional distress [None]
  - Wound complication [None]
  - Scar [None]
  - Injury [None]
